FAERS Safety Report 9362989 (Version 8)
Quarter: 2013Q4

REPORT INFORMATION
  Report Type: Report from Study
  Country: CA (occurrence: CA)
  Receive Date: 20130624
  Receipt Date: 20131009
  Transmission Date: 20140711
  Serious: Yes (Other)
  Sender: FDA-Public Use
  Company Number: CA-ROCHE-1187553

PATIENT
  Age: 38 Year
  Sex: Male
  Weight: 99.4 kg

DRUGS (12)
  1. AVASTIN [Suspect]
     Indication: GLIOBLASTOMA
     Dosage: THERAPY START DATE 28/JAN/2013
     Route: 042
     Dates: end: 20130917
  2. AVASTIN [Suspect]
     Dosage: THERAPY START DATE 16/JUL/2013
     Route: 042
  3. DEXAMETHASONE [Concomitant]
     Route: 065
     Dates: end: 20130311
  4. RANITIDINE [Concomitant]
     Route: 065
     Dates: end: 20130311
  5. OMEGA 3 [Concomitant]
  6. ASTRAGALUS [Concomitant]
  7. GINSENG [Concomitant]
  8. ASHWAGANDHA [Concomitant]
  9. MELATONIN [Concomitant]
  10. SOLU-MEDROL [Concomitant]
     Indication: PREMEDICATION
     Route: 042
     Dates: start: 20130128, end: 20130625
  11. BENADRYL [Concomitant]
     Indication: PREMEDICATION
     Route: 048
     Dates: start: 20130128, end: 20130716
  12. LOMUSTINE [Concomitant]
     Route: 065
     Dates: start: 20130628

REACTIONS (22)
  - Memory impairment [Not Recovered/Not Resolved]
  - Balance disorder [Not Recovered/Not Resolved]
  - Blood pressure increased [Recovered/Resolved]
  - Tremor [Recovered/Resolved]
  - Somnolence [Not Recovered/Not Resolved]
  - Dysphonia [Not Recovered/Not Resolved]
  - Epistaxis [Recovered/Resolved]
  - Flushing [Not Recovered/Not Resolved]
  - Dry skin [Unknown]
  - Skin exfoliation [Unknown]
  - Weight decreased [Not Recovered/Not Resolved]
  - Acne [Unknown]
  - Acne [Unknown]
  - Fall [Unknown]
  - Excoriation [Recovering/Resolving]
  - Tremor [Not Recovered/Not Resolved]
  - Yellow skin [Not Recovered/Not Resolved]
  - Neoplasm [Not Recovered/Not Resolved]
  - General physical health deterioration [Not Recovered/Not Resolved]
  - Drug resistance [Not Recovered/Not Resolved]
  - Convulsion [Recovered/Resolved]
  - Vomiting [Recovered/Resolved]
